FAERS Safety Report 5413734-7 (Version None)
Quarter: 2007Q3

REPORT INFORMATION
  Report Type: 
  Country: None (occurrence: None)
  Receive Date: 20070814
  Receipt Date: 20070803
  Transmission Date: 20080115
  Serious: Yes (Hospitalization)
  Sender: FDA-Public Use
  Company Number: NL-JNJFOC-20070800943

PATIENT
  Sex: Male
  Weight: 80.2 kg

DRUGS (4)
  1. REMICADE [Suspect]
     Indication: CROHN'S DISEASE
     Route: 042
  2. PREDNISONE TAB [Concomitant]
     Indication: CROHN'S DISEASE
  3. PENTASA [Concomitant]
     Indication: CROHN'S DISEASE
  4. IMURAN [Concomitant]
     Indication: CROHN'S DISEASE

REACTIONS (4)
  - CLOSTRIDIAL INFECTION [None]
  - CYTOMEGALOVIRUS INFECTION [None]
  - DEEP VEIN THROMBOSIS [None]
  - PYREXIA [None]
